FAERS Safety Report 8668008 (Version 2)
Quarter: 2013Q4

REPORT INFORMATION
  Report Type: Spontaneous
  Country: US (occurrence: US)
  Receive Date: 20120717
  Receipt Date: 20131101
  Transmission Date: 20140711
  Serious: No
  Sender: FDA-Public Use
  Company Number: US-009507513-1206USA05357

PATIENT
  Age: 83 Year
  Sex: Female

DRUGS (8)
  1. JANUMET [Suspect]
     Dosage: 1000MG/50
     Route: 048
     Dates: end: 20120627
  2. TOPROL XL TABLETS [Concomitant]
     Dosage: 100 MG, QD
  3. AMLODIPINE [Concomitant]
     Dosage: 1 DF, QD
     Route: 048
  4. LISINOPRIL [Concomitant]
     Dosage: 40 MG, QD
  5. LISINOPRIL [Concomitant]
     Dosage: 40 MG, QD
  6. CHLORTHALIDONE [Concomitant]
     Dosage: 25 MG, QD
  7. SIMVASTATIN [Concomitant]
     Dosage: 20 MG, UNK
     Route: 048
  8. RANITIDINE [Concomitant]
     Dosage: 150 MG, UNK

REACTIONS (2)
  - Abdominal pain upper [Unknown]
  - Diarrhoea [Unknown]
